FAERS Safety Report 5335406-X (Version None)
Quarter: 2007Q2

REPORT INFORMATION
  Report Type: 
  Country: None (occurrence: None)
  Receive Date: 20070525
  Receipt Date: 20070515
  Transmission Date: 20071010
  Serious: Yes (Other)
  Sender: FDA-Public Use
  Company Number: US-PFIZER INC-2007040110

PATIENT
  Sex: Male
  Weight: 74.4 kg

DRUGS (5)
  1. CHANTIX [Suspect]
     Indication: SMOKING CESSATION THERAPY
  2. ZYRTEC [Concomitant]
  3. BUPROPION HYDROCHLORIDE [Concomitant]
  4. NEXIUM [Concomitant]
  5. VITAMIN CAP [Concomitant]

REACTIONS (3)
  - DRY MOUTH [None]
  - STOMACH DISCOMFORT [None]
  - SWOLLEN TONGUE [None]
